FAERS Safety Report 8616875 (Version 3)
Quarter: 2013Q1

REPORT INFORMATION
  Report Type: Spontaneous
  Country: JP (occurrence: JP)
  Receive Date: 20120615
  Receipt Date: 20130204
  Transmission Date: 20140127
  Serious: Yes (Other)
  Sender: FDA-Public Use
  Company Number: PHHY2012JP049940

PATIENT
  Age: 78 Year
  Sex: Male

DRUGS (7)
  1. EXELON PATCH [Suspect]
     Indication: DEMENTIA ALZHEIMER^S TYPE
     Dosage: 18 MG DAILY
     Route: 062
     Dates: start: 20120104, end: 20120604
  2. EXELON PATCH [Suspect]
     Dosage: 18 MG, DAILY
     Route: 062
     Dates: start: 20120606
  3. SELBEX [Concomitant]
     Dosage: 150 MG
     Route: 048
     Dates: start: 20120518
  4. GAMOFA [Concomitant]
     Dosage: 20 MG
     Route: 048
     Dates: start: 20110518
  5. LASIX [Concomitant]
     Dosage: 40 MG
     Route: 048
     Dates: start: 20110518
  6. ALDACTONE-A [Concomitant]
     Dosage: 25 MG
     Dates: start: 20110518
  7. MAGNESIUM OXIDE [Concomitant]
     Dosage: 1 G
     Route: 048
     Dates: start: 20110518

REACTIONS (3)
  - Transient ischaemic attack [Recovering/Resolving]
  - Loss of consciousness [Unknown]
  - Convulsion [Recovering/Resolving]
